FAERS Safety Report 18558507 (Version 1)
Quarter: 2020Q4

REPORT INFORMATION
  Report Type: Spontaneous
  Country: US (occurrence: US)
  Receive Date: 20201130
  Receipt Date: 20201130
  Transmission Date: 20210114
  Serious: No
  Sender: FDA-Public Use
  Company Number: US-CIPLA LTD.-2020US07541

PATIENT

DRUGS (7)
  1. LEVOTHYROXINE. [Concomitant]
     Active Substance: LEVOTHYROXINE
     Indication: THYROID DISORDER
     Dosage: UNK
     Route: 065
  2. METHOTREXATE. [Concomitant]
     Active Substance: METHOTREXATE
     Indication: ARTHRITIS
     Dosage: UNK
     Route: 065
  3. LEVALBUTEROL [LEVOSALBUTAMOL] [Concomitant]
     Active Substance: LEVALBUTEROL
     Indication: PRODUCT USED FOR UNKNOWN INDICATION
     Dosage: UNK
     Route: 065
  4. BUDESONIDE. [Suspect]
     Active Substance: BUDESONIDE
     Dosage: 0.5 MG 2 ML, UNK
     Dates: start: 2020
  5. BUDESONIDE. [Suspect]
     Active Substance: BUDESONIDE
     Indication: PRODUCT USED FOR UNKNOWN INDICATION
     Dosage: 0.5 MG 2 ML, UNK
     Dates: start: 2020
  6. BUDESONIDE. [Suspect]
     Active Substance: BUDESONIDE
     Dosage: UNK
  7. BUDESONIDE. [Suspect]
     Active Substance: BUDESONIDE
     Dosage: UNK

REACTIONS (11)
  - Product quality issue [Unknown]
  - Productive cough [Unknown]
  - Micturition disorder [Unknown]
  - Chest pain [Unknown]
  - Product packaging issue [Unknown]
  - Chest discomfort [Unknown]
  - Feeling abnormal [Unknown]
  - Unevaluable event [Recovered/Resolved]
  - Burning sensation [Unknown]
  - Product label issue [Unknown]
  - Cough [Unknown]

NARRATIVE: CASE EVENT DATE: 2020
